FAERS Safety Report 6672886-1 (Version None)
Quarter: 2010Q2

REPORT INFORMATION
  Report Type: 
  Country: None (occurrence: None)
  Receive Date: 20100408
  Receipt Date: 20100329
  Transmission Date: 20101027
  Serious: Yes (Hospitalization, Other)
  Sender: FDA-Public Use
  Company Number: PHHY2009AU36423

PATIENT
  Sex: Male

DRUGS (3)
  1. GLEEVEC [Suspect]
     Indication: CHRONIC MYELOID LEUKAEMIA
     Dosage: 400 MG, UNK
     Route: 048
     Dates: start: 20080223
  2. MAGNESIUM SUPPLEMENTS [Concomitant]
  3. POTASSIUM SUPPLEMENTS [Concomitant]

REACTIONS (7)
  - ATRIAL FIBRILLATION [None]
  - DEHYDRATION [None]
  - HEADACHE [None]
  - IMPAIRED HEALING [None]
  - MUSCLE SPASMS [None]
  - NAUSEA [None]
  - VIRAL INFECTION [None]
